FAERS Safety Report 8556879-5 (Version None)
Quarter: 2012Q3

REPORT INFORMATION
  Report Type: 
  Country: None (occurrence: None)
  Receive Date: 20120801
  Receipt Date: 20120720
  Transmission Date: 20120928
  Serious: No
  Sender: FDA-Public Use
  Company Number: US-PFIZER INC-2012161463

PATIENT

DRUGS (4)
  1. ONGLYZA [Suspect]
     Dosage: 5 MG, 1X/DAY IN THE MORNING
  2. GLIPIZIDE [Suspect]
     Dosage: 5 MG, UNK
  3. LANTUS [Suspect]
     Dosage: 20 IU, UNK
     Route: 058
     Dates: start: 20120620
  4. METFORMIN HCL [Suspect]
     Dosage: 1000 MG, UNK

REACTIONS (1)
  - BLOOD GLUCOSE INCREASED [None]
